FAERS Safety Report 7900684-7 (Version None)
Quarter: 2011Q4

REPORT INFORMATION
  Report Type: 
  Country: None (occurrence: None)
  Receive Date: 20111108
  Receipt Date: 20111101
  Transmission Date: 20120403
  Serious: Yes (Death, Hospitalization)
  Sender: FDA-Public Use
  Company Number: JP-CELGENEUS-087-21880-11091514

PATIENT
  Sex: Male

DRUGS (1)
  1. REVLIMID [Suspect]
     Dosage: 10 MILLIGRAM
     Route: 048
     Dates: start: 20110113, end: 20110202

REACTIONS (4)
  - MYELODYSPLASTIC SYNDROME TRANSFORMATION [None]
  - NEUTROPENIA [None]
  - ACUTE MYELOID LEUKAEMIA [None]
  - THROMBOCYTOPENIA [None]
